FAERS Safety Report 22594853 (Version 2)
Quarter: 2023Q2

REPORT INFORMATION
  Report Type: Spontaneous
  Country: PT (occurrence: PT)
  Receive Date: 20230613
  Receipt Date: 20230626
  Transmission Date: 20230721
  Serious: Yes (Hospitalization, Other)
  Sender: FDA-Public Use
  Company Number: PT-MYLANLABS-2023M1061136

PATIENT
  Age: 72 Year
  Sex: Male

DRUGS (1)
  1. AMIODARONE [Suspect]
     Active Substance: AMIODARONE
     Indication: Atrial fibrillation
     Dosage: UNK
     Route: 065

REACTIONS (5)
  - Secondary hyperthyroidism [Recovering/Resolving]
  - Cardiac fibrillation [Unknown]
  - Euglycaemic diabetic ketoacidosis [Unknown]
  - Thyrotoxic crisis [Unknown]
  - Drug ineffective [Unknown]
